FAERS Safety Report 15353638 (Version 2)
Quarter: 2018Q4

REPORT INFORMATION
  Report Type: Spontaneous
  Country: US (occurrence: US)
  Receive Date: 20180905
  Receipt Date: 20181203
  Transmission Date: 20190204
  Serious: No
  Sender: FDA-Public Use
  Company Number: US-PTC THERAPEUTICS, INC.-US-2018PTC000561

PATIENT

DRUGS (1)
  1. EMFLAZA [Suspect]
     Active Substance: DEFLAZACORT
     Indication: MUSCULAR DYSTROPHY
     Dosage: 1.8 ML, UNK
     Route: 048
     Dates: start: 20180404

REACTIONS (4)
  - Oropharyngeal pain [Unknown]
  - Pulmonary congestion [Unknown]
  - Pharyngeal erythema [Unknown]
  - Chest pain [Unknown]

NARRATIVE: CASE EVENT DATE: 2018
